FAERS Safety Report 15487917 (Version 3)
Quarter: 2019Q3

REPORT INFORMATION
  Report Type: Report from Study
  Country: US (occurrence: US)
  Receive Date: 20181011
  Receipt Date: 20190701
  Transmission Date: 20191004
  Serious: Yes (Other)
  Sender: FDA-Public Use
  Company Number: US-SA-2018SA279003

PATIENT
  Age: 21 Year
  Sex: Female

DRUGS (2)
  1. DUPILUMAB [Suspect]
     Active Substance: DUPILUMAB
     Indication: DERMATITIS ATOPIC
     Dosage: 600 MG, 1X
     Route: 058
     Dates: start: 20180808, end: 20180808
  2. DUPILUMAB [Suspect]
     Active Substance: DUPILUMAB
     Indication: ECZEMA
     Dosage: 300 MG, QOW
     Route: 058
     Dates: start: 20180822

REACTIONS (24)
  - Anaphylactic shock [Recovering/Resolving]
  - Dizziness [Recovered/Resolved]
  - Injection site bruising [Not Recovered/Not Resolved]
  - Oropharyngeal pain [Not Recovered/Not Resolved]
  - Injection site erythema [Unknown]
  - Throat tightness [Recovering/Resolving]
  - Injection site pain [Unknown]
  - Injection site urticaria [Unknown]
  - Nausea [Recovered/Resolved]
  - Visual impairment [Recovered/Resolved]
  - Erythema [Recovered/Resolved]
  - Dysstasia [Recovered/Resolved]
  - Muscle tightness [Recovered/Resolved]
  - Dizziness [Recovered/Resolved]
  - Injection site mass [Recovered/Resolved]
  - Disturbance in attention [Recovered/Resolved]
  - Malaise [Not Recovered/Not Resolved]
  - Cough [Not Recovered/Not Resolved]
  - Unevaluable event [Recovered/Resolved]
  - Temperature intolerance [Unknown]
  - Time perception altered [Recovering/Resolving]
  - Swelling face [Recovering/Resolving]
  - Dyspnoea [Recovered/Resolved]
  - Contusion [Not Recovered/Not Resolved]

NARRATIVE: CASE EVENT DATE: 201808
